FAERS Safety Report 20964530 (Version 1)
Quarter: 2022Q2

REPORT INFORMATION
  Report Type: Spontaneous
  Country: US (occurrence: US)
  Receive Date: 20220615
  Receipt Date: 20220615
  Transmission Date: 20220721
  Serious: No
  Sender: FDA-Public Use
  Company Number: CID000000000025045

PATIENT
  Sex: Male

DRUGS (1)
  1. MUPIROCIN [Suspect]
     Active Substance: MUPIROCIN
     Indication: Klebsiella infection
     Route: 045

REACTIONS (4)
  - Product prescribing error [Unknown]
  - Product prescribing issue [Unknown]
  - Incorrect route of product administration [Unknown]
  - Rhinorrhoea [Unknown]
